FAERS Safety Report 9868220 (Version 1)
Quarter: 2014Q1

REPORT INFORMATION
  Report Type: Spontaneous
  Country: IL (occurrence: IL)
  Receive Date: 20140204
  Receipt Date: 20140204
  Transmission Date: 20141002
  Serious: Yes (Other)
  Sender: FDA-Public Use
  Company Number: PHHY2014IL012380

PATIENT
  Sex: Male
  Weight: 2.98 kg

DRUGS (6)
  1. CICLOSPORIN [Suspect]
     Dosage: MATERNAL DOSE:400 MG, QD
     Route: 064
  2. DICLOFENAC [Suspect]
  3. PREDNISOLONE [Suspect]
     Dosage: MATERNAL DOSE:20 MG, QD
     Route: 064
  4. AZATHIOPRINE [Suspect]
     Dosage: MATERNAL DOSE:75 MG, QD
     Route: 064
  5. SPIRAMYCIN [Suspect]
  6. DIPIRONE [Suspect]

REACTIONS (2)
  - Premature baby [Unknown]
  - Foetal exposure during pregnancy [Unknown]
